FAERS Safety Report 15305351 (Version 1)
Quarter: 2018Q3

REPORT INFORMATION
  Report Type: Spontaneous
  Country: BE (occurrence: BE)
  Receive Date: 20180822
  Receipt Date: 20180822
  Transmission Date: 20181010
  Serious: Yes (Other)
  Sender: FDA-Public Use
  Company Number: BE-TEVA-2018-BE-944719

PATIENT
  Sex: Male

DRUGS (1)
  1. ZOLPIDEM [Suspect]
     Active Substance: ZOLPIDEM\ZOLPIDEM TARTRATE
     Dosage: FIRST 1/2 TABLET. THEN AFTER A WEEK, A WHOLE TABLET AND THEN VERY QUICKLY 2 TABLETS
     Route: 065

REACTIONS (4)
  - Dependence [Unknown]
  - Abnormal behaviour [Unknown]
  - Hallucination [Unknown]
  - Sleep disorder [Unknown]
